FAERS Safety Report 7821117 (Version 4)
Quarter: 2012Q4

REPORT INFORMATION
  Report Type: 
  Country: US (occurrence: US)
  Receive Date: 20110222
  Receipt Date: 20121029
  Transmission Date: 20130627
  Serious: Yes (Other)
  Sender: FDA-Public Use
  Company Number: US-AMGEN-USASP2011007902

PATIENT
  Age: 39 Year
  Sex: Female
  Weight: 113.38 kg

DRUGS (2)
  1. ENBREL [Suspect]
     Indication: PSORIASIS
     Dosage: 50 mg, 2 times/wk
     Route: 058
     Dates: start: 20070605, end: 200709
  2. ENBREL [Suspect]
     Indication: PSORIATIC ARTHROPATHY
     Dosage: 50 mg, qwk
     Route: 058
     Dates: start: 200709, end: 20110904

REACTIONS (4)
  - Mycobacterium tuberculosis complex test positive [Unknown]
  - Hepatic enzyme increased [Recovered/Resolved]
  - Psoriasis [Unknown]
  - Injection site pain [Unknown]
